FAERS Safety Report 26057821 (Version 1)
Quarter: 2025Q4

REPORT INFORMATION
  Report Type: Spontaneous
  Country: CN (occurrence: CN)
  Receive Date: 20251118
  Receipt Date: 20251118
  Transmission Date: 20260118
  Serious: Yes (Death, Life-Threatening, Other)
  Sender: AMGEN
  Company Number: CN-AMGEN-CHNSP2025225247

PATIENT

DRUGS (2)
  1. ETANERCEPT [Suspect]
     Active Substance: ETANERCEPT
     Indication: Rheumatoid arthritis
     Dosage: UNK
     Route: 065
  2. ETANERCEPT [Suspect]
     Active Substance: ETANERCEPT
     Indication: Psoriatic arthropathy

REACTIONS (99)
  - Death [Fatal]
  - Acute respiratory distress syndrome [Unknown]
  - Multiple organ dysfunction syndrome [Unknown]
  - Septic shock [Unknown]
  - Sepsis [Unknown]
  - Cardiac failure [Unknown]
  - Respiratory failure [Unknown]
  - Renal failure [Unknown]
  - Acute respiratory failure [Unknown]
  - Dyspnoea [Unknown]
  - Interstitial lung disease [Unknown]
  - Respiratory moniliasis [Unknown]
  - Pneumonia cryptococcal [Unknown]
  - Pneumocystis jirovecii pneumonia [Unknown]
  - Pneumonia fungal [Unknown]
  - Pneumocystis jirovecii infection [Unknown]
  - Mucormycosis [Unknown]
  - Disseminated mucormycosis [Unknown]
  - Candida pneumonia [Unknown]
  - Bronchopulmonary aspergillosis [Unknown]
  - Acute pulmonary histoplasmosis [Unknown]
  - Lung disorder [Unknown]
  - Pneumothorax [Unknown]
  - Hypoxia [Unknown]
  - Fall [Unknown]
  - Pulmonary embolism [Unknown]
  - Herpes zoster [Unknown]
  - Hypokalaemia [Unknown]
  - Atrial fibrillation [Unknown]
  - Pulmonary mass [Unknown]
  - Pneumonitis [Unknown]
  - Thrombocytopenia [Unknown]
  - Immunodeficiency [Unknown]
  - Bacteraemia [Unknown]
  - Immunosuppression [Unknown]
  - Pancytopenia [Unknown]
  - Pneumonia bacterial [Unknown]
  - Cytokine release syndrome [Unknown]
  - COVID-19 pneumonia [Unknown]
  - Acute kidney injury [Unknown]
  - Pneumonia cytomegaloviral [Unknown]
  - Tuberculosis [Unknown]
  - Aspergillus infection [Unknown]
  - Febrile neutropenia [Unknown]
  - Hypogammaglobulinaemia [Unknown]
  - Rheumatoid arthritis [Unknown]
  - Colitis [Unknown]
  - Pneumonia [Unknown]
  - Neutropenia [Unknown]
  - Fungal infection [Unknown]
  - Rash [Unknown]
  - Bronchitis [Unknown]
  - Arthralgia [Unknown]
  - Cytomegalovirus infection [Unknown]
  - Lymphopenia [Unknown]
  - Coccidioidomycosis [Unknown]
  - Infusion related reaction [Unknown]
  - Sinusitis [Unknown]
  - Urinary tract infection [Unknown]
  - Upper respiratory tract infection [Unknown]
  - Influenza [Unknown]
  - Nasopharyngitis [Unknown]
  - Cellulitis [Unknown]
  - Infection [Unknown]
  - Pleural effusion [Unknown]
  - Psoriasis [Unknown]
  - Hyponatraemia [Unknown]
  - COVID-19 [Unknown]
  - Bacterial infection [Unknown]
  - Viral infection [Unknown]
  - Hypotension [Unknown]
  - Candida infection [Unknown]
  - Staphylococcal infection [Unknown]
  - Anaemia [Unknown]
  - Hypertension [Unknown]
  - Asthenia [Unknown]
  - Pyrexia [Unknown]
  - Cough [Unknown]
  - Diarrhoea [Unknown]
  - Vomiting [Unknown]
  - Nausea [Unknown]
  - Abdominal pain [Unknown]
  - Headache [Unknown]
  - Pain [Unknown]
  - Fatigue [Unknown]
  - Condition aggravated [Unknown]
  - Drug interaction [Unknown]
  - Disease progression [Unknown]
  - Malaise [Unknown]
  - Product use issue [Unknown]
  - Intentional product use issue [Unknown]
  - Oxygen saturation decreased [Unknown]
  - Product use in unapproved indication [Unknown]
  - Weight decreased [Unknown]
  - White blood cell count decreased [Unknown]
  - Decreased appetite [Unknown]
  - Drug intolerance [Unknown]
  - Dizziness [Unknown]
  - Dehydration [Unknown]
